FAERS Safety Report 19782007 (Version 1)
Quarter: 2021Q3

REPORT INFORMATION
  Report Type: Spontaneous
  Country: DE (occurrence: DE)
  Receive Date: 20210902
  Receipt Date: 20210902
  Transmission Date: 20211014
  Serious: Yes (Other)
  Sender: FDA-Public Use
  Company Number: DE-MYLANLABS-2021M1057641

PATIENT
  Sex: Male

DRUGS (2)
  1. METFORMIN [Suspect]
     Active Substance: METFORMIN HYDROCHLORIDE
     Indication: PRODUCT USED FOR UNKNOWN INDICATION
     Dosage: 2000 MILLIGRAM, QD
     Route: 048
     Dates: start: 2016
  2. VELMETIA [Suspect]
     Active Substance: METFORMIN\SITAGLIPTIN
     Indication: BLOOD GLUCOSE ABNORMAL
     Dosage: 2 DOSAGE FORM, QD (50/1000MG TWICE DAILY (DAILY DOSE OF 100/2000 MG)
     Route: 048
     Dates: start: 201806, end: 201912

REACTIONS (2)
  - Pemphigus [Unknown]
  - Overdose [Unknown]

NARRATIVE: CASE EVENT DATE: 201806
